FAERS Safety Report 5700243-0 (Version None)
Quarter: 2008Q2

REPORT INFORMATION
  Report Type: 
  Country: None (occurrence: None)
  Receive Date: 20080410
  Receipt Date: 20080401
  Transmission Date: 20081010
  Serious: Yes (Hospitalization)
  Sender: FDA-Public Use
  Company Number: LT-ABBOTT-08P-234-0444978-00

PATIENT
  Sex: Female

DRUGS (7)
  1. TARKA [Suspect]
     Indication: HYPERTENSION
     Route: 048
     Dates: start: 20070717, end: 20071217
  2. BETAHISTINE HYDROCHLORIDE [Concomitant]
     Indication: DRUG USE FOR UNKNOWN INDICATION
  3. CLOPIDOGREL [Concomitant]
     Indication: DRUG USE FOR UNKNOWN INDICATION
  4. VINPOCETINE [Concomitant]
     Indication: DRUG USE FOR UNKNOWN INDICATION
  5. PARACETAMOL [Concomitant]
     Indication: RESPIRATORY TRACT INFECTION VIRAL
  6. DICLOFENCUM [Concomitant]
     Indication: DRUG USE FOR UNKNOWN INDICATION
  7. MOXONIDINUM [Concomitant]
     Indication: DRUG USE FOR UNKNOWN INDICATION
     Dates: start: 20070717

REACTIONS (2)
  - BRADYCARDIA [None]
  - DIZZINESS [None]
